FAERS Safety Report 10228045 (Version 2)
Quarter: 2014Q2

REPORT INFORMATION
  Report Type: Spontaneous
  Country: NL (occurrence: NL)
  Receive Date: 20140610
  Receipt Date: 20140617
  Transmission Date: 20141212
  Serious: Yes (Other)
  Sender: FDA-Public Use
  Company Number: NL-PFIZER INC-2014156365

PATIENT
  Age: 28 Year
  Sex: Male
  Weight: 96 kg

DRUGS (2)
  1. GABAPENTIN [Suspect]
     Indication: SLEEP DISORDER
     Dosage: 900 MG, 1X/DAY
     Dates: start: 20130101, end: 20140523
  2. TOPIRAMATE [Interacting]
     Indication: SLEEP DISORDER
     Dosage: 25 MG, 1X/DAY
     Dates: start: 20140516, end: 20140523

REACTIONS (6)
  - Off label use [Recovered/Resolved]
  - Cognitive disorder [Recovered/Resolved]
  - Memory impairment [Recovered/Resolved]
  - Disturbance in attention [Recovered/Resolved]
  - Agitation [Recovered/Resolved]
  - Drug interaction [Recovered/Resolved]
